FAERS Safety Report 4315793-1 (Version None)
Quarter: 2004Q1

REPORT INFORMATION
  Report Type: 
  Country: None (occurrence: None)
  Receive Date: 20040310
  Receipt Date: 20040225
  Transmission Date: 20041129
  Serious: Yes (Other)
  Sender: FDA-Public Use
  Company Number: 2004012872

PATIENT
  Sex: 0

DRUGS (3)
  1. GEODON [Suspect]
     Indication: ILL-DEFINED DISORDER
     Dosage: 80 MG (BID)
  2. FLUOXETINE HCL [Concomitant]
  3. RISPERIDONE [Concomitant]

REACTIONS (8)
  - BLOOD CREATINE PHOSPHOKINASE INCREASED [None]
  - FEELING ABNORMAL [None]
  - HEADACHE [None]
  - MUSCLE RIGIDITY [None]
  - MUSCLE TWITCHING [None]
  - NEUROLEPTIC MALIGNANT SYNDROME [None]
  - PYREXIA [None]
  - SEROTONIN SYNDROME [None]
